FAERS Safety Report 4454255-8 (Version None)
Quarter: 2004Q3

REPORT INFORMATION
  Report Type: 
  Country: None (occurrence: None)
  Receive Date: 20040826
  Receipt Date: 20040621
  Transmission Date: 20050211
  Serious: No
  Sender: FDA-Public Use
  Company Number: WAES 0406USA02020

PATIENT
  Age: 60 Year
  Sex: Male

DRUGS (6)
  1. ZETIA [Suspect]
     Indication: DYSLIPIDAEMIA
     Dosage: 10 MG/DAILY/PO
     Route: 048
     Dates: start: 20040521, end: 20040619
  2. LIPITOR [Concomitant]
  3. PLAVIX [Concomitant]
  4. PRILOSEC [Concomitant]
  5. TOPROL-XL [Concomitant]
  6. VASOTEC [Concomitant]

REACTIONS (1)
  - TREMOR [None]
